FAERS Safety Report 12721585 (Version 1)
Quarter: 2016Q3

REPORT INFORMATION
  Report Type: Spontaneous
  Country: US (occurrence: US)
  Receive Date: 20160906
  Receipt Date: 20160906
  Transmission Date: 20161109
  Serious: Yes (Other)
  Sender: FDA-Public Use
  Company Number: None

PATIENT
  Age: 52 Year
  Sex: Female
  Weight: 109.77 kg

DRUGS (1)
  1. JANUVIA [Suspect]
     Active Substance: SITAGLIPTIN PHOSPHATE
     Indication: TYPE 2 DIABETES MELLITUS
     Dates: start: 20160813, end: 20160826

REACTIONS (6)
  - Chills [None]
  - Fatigue [None]
  - Back pain [None]
  - Confusional state [None]
  - Myalgia [None]
  - Urinary retention [None]

NARRATIVE: CASE EVENT DATE: 20160825
